FAERS Safety Report 11940760 (Version 2)
Quarter: 2016Q1

REPORT INFORMATION
  Report Type: Spontaneous
  Country: US (occurrence: US)
  Receive Date: 20160122
  Receipt Date: 20160127
  Transmission Date: 20160526
  Serious: No
  Sender: FDA-Public Use
  Company Number: PHEH2016US001618

PATIENT
  Sex: Female

DRUGS (1)
  1. HYDROCHLOROTHIAZIDE,VALSARTAN [Suspect]
     Active Substance: HYDROCHLOROTHIAZIDE\VALSARTAN
     Indication: PRODUCT USED FOR UNKNOWN INDICATION
     Dosage: (320 MG VALSARTAN, 12.5 MG HYDROCHLOROTHIAZIDE)
     Route: 065

REACTIONS (2)
  - Drug ineffective [Unknown]
  - Blood pressure inadequately controlled [Unknown]
